FAERS Safety Report 5380712-6 (Version None)
Quarter: 2007Q2

REPORT INFORMATION
  Report Type: 
  Country: None (occurrence: None)
  Receive Date: 20070530
  Receipt Date: 20070221
  Transmission Date: 20071010
  Serious: No
  Sender: FDA-Public Use
  Company Number: 2007PV030507

PATIENT
  Age: 59 Year
  Sex: Female
  Weight: 95.709 kg

DRUGS (13)
  1. BYETTA [Suspect]
     Indication: DIABETES MELLITUS NON-INSULIN-DEPENDENT
     Dosage: 10 MCG;BID;SC; 10 MCG;BID;SC; 5 MCG;BID;SC
     Route: 058
     Dates: start: 20050101, end: 20050101
  2. BYETTA [Suspect]
     Indication: DIABETES MELLITUS NON-INSULIN-DEPENDENT
     Dosage: 10 MCG;BID;SC; 10 MCG;BID;SC; 5 MCG;BID;SC
     Route: 058
     Dates: start: 20050101
  3. AMARYL [Concomitant]
  4. METFORMIN HCL [Concomitant]
  5. CADUET [Concomitant]
  6. ASPIRIN [Concomitant]
  7. GLUCOSAMINE W/ CHONDROITIN [Concomitant]
  8. MEGA VITAMINS [Concomitant]
  9. E-VITAMIN [Concomitant]
  10. PREMARIN [Concomitant]
  11. COREG [Concomitant]
  12. VASOTEC [Concomitant]
  13. LIPITOR [Concomitant]

REACTIONS (2)
  - ABDOMINAL DISTENSION [None]
  - WEIGHT FLUCTUATION [None]
